FAERS Safety Report 19061025 (Version 1)
Quarter: 2021Q1

REPORT INFORMATION
  Report Type: Spontaneous
  Country: US (occurrence: US)
  Receive Date: 20210325
  Receipt Date: 20210325
  Transmission Date: 20210420
  Serious: Yes (Other)
  Sender: FDA-Public Use
  Company Number: US-BIOGEN-2021BI00991506

PATIENT
  Sex: Female

DRUGS (5)
  1. TECFIDERA [Suspect]
     Active Substance: DIMETHYL FUMARATE
     Indication: MULTIPLE SCLEROSIS
     Route: 065
  2. TERIFLUNOMIDE. [Suspect]
     Active Substance: TERIFLUNOMIDE
     Indication: MULTIPLE SCLEROSIS
     Route: 048
     Dates: start: 20160212
  3. OXYCODONE [Concomitant]
     Active Substance: OXYCODONE
     Indication: PRODUCT USED FOR UNKNOWN INDICATION
     Route: 065
  4. FENTANYL. [Concomitant]
     Active Substance: FENTANYL
     Indication: PRODUCT USED FOR UNKNOWN INDICATION
     Route: 065
  5. NEURONTIN [Concomitant]
     Active Substance: GABAPENTIN

REACTIONS (11)
  - Memory impairment [Not Recovered/Not Resolved]
  - Product packaging difficult to open [Unknown]
  - Chronic kidney disease [Unknown]
  - Purulence [Unknown]
  - Anaemia [Unknown]
  - Hypoaesthesia [Not Recovered/Not Resolved]
  - Liver disorder [Unknown]
  - Throat clearing [Unknown]
  - Dysphonia [Not Recovered/Not Resolved]
  - Plasma cell myeloma [Unknown]
  - Renal disorder [Unknown]
